FAERS Safety Report 5626171-7 (Version None)
Quarter: 2008Q1

REPORT INFORMATION
  Report Type: 
  Country: None (occurrence: None)
  Receive Date: 20080213
  Receipt Date: 20080213
  Transmission Date: 20080703
  Serious: Yes (Hospitalization)
  Sender: FDA-Public Use
  Company Number: None

PATIENT
  Sex: Female
  Weight: 75.75 kg

DRUGS (8)
  1. PACLITAXEL [Suspect]
     Dosage: 192 MG
  2. CELECOXIB [Concomitant]
  3. CELEXA [Concomitant]
  4. CLIMARA [Concomitant]
  5. DIAZEPAM [Concomitant]
  6. MARINOL [Concomitant]
  7. MORPHINE [Concomitant]
  8. ZOFRAN [Concomitant]

REACTIONS (21)
  - ABDOMINAL PAIN [None]
  - ABDOMINAL TENDERNESS [None]
  - BACK PAIN [None]
  - BACTERIA URINE [None]
  - BODY TEMPERATURE DECREASED [None]
  - CARBOHYDRATE ANTIGEN 125 INCREASED [None]
  - GASTROINTESTINAL SOUNDS ABNORMAL [None]
  - HEART RATE INCREASED [None]
  - LIPASE INCREASED [None]
  - METASTASES TO SPLEEN [None]
  - ORAL INTAKE REDUCED [None]
  - PLATELET COUNT INCREASED [None]
  - PLEURAL EFFUSION [None]
  - SMALL INTESTINAL OBSTRUCTION [None]
  - SPLENIC LESION [None]
  - TREATMENT NONCOMPLIANCE [None]
  - URINARY CASTS [None]
  - URINARY SEDIMENT PRESENT [None]
  - URINE KETONE BODY PRESENT [None]
  - VOMITING [None]
  - WHITE BLOOD CELLS URINE POSITIVE [None]
